FAERS Safety Report 18179513 (Version 2)
Quarter: 2020Q3

REPORT INFORMATION
  Report Type: Report from Study
  Country: AU (occurrence: AU)
  Receive Date: 20200820
  Receipt Date: 20200922
  Transmission Date: 20201103
  Serious: Yes (Hospitalization)
  Sender: FDA-Public Use
  Company Number: AU-VERTEX PHARMACEUTICALS-2020-016662

PATIENT
  Age: 16 Year
  Sex: Female
  Weight: 40 kg

DRUGS (9)
  1. HYPERTONIC SALINE SOLUTION [Concomitant]
     Active Substance: SODIUM CHLORIDE
     Indication: CYSTIC FIBROSIS LUNG
     Dosage: 5 MILLILITER, BID, NEB
     Route: 055
     Dates: start: 2008
  2. PROTAPHANE [Concomitant]
     Active Substance: INSULIN HUMAN
     Indication: CYSTIC FIBROSIS RELATED DIABETES
     Dosage: 52 UNITS
     Route: 058
     Dates: start: 20200712
  3. CREON [Concomitant]
     Active Substance: PANCRELIPASE AMYLASE\PANCRELIPASE LIPASE\PANCRELIPASE PROTEASE
     Indication: PANCREATIC FAILURE
     Dosage: 25,000/10,000 CAPSULES WITH FAT, PRN
     Route: 048
     Dates: start: 2004
  4. VX?445/VX?661/VX?770 [Suspect]
     Active Substance: ELEXACAFTOR\IVACAFTOR\TEZACAFTOR
     Indication: CYSTIC FIBROSIS
     Dosage: 100 MG ELEXACAFTOR/ 50 MG TEZACAFTOR/ 75 MG IVACAFTOR; 150MG IVACAFTOR
     Route: 048
     Dates: start: 20200722
  5. AZITHROMYCIN ANHYDROUS. [Concomitant]
     Active Substance: AZITHROMYCIN ANHYDROUS
     Indication: CYSTIC FIBROSIS LUNG
     Dosage: 250 MG, 3 TIMES A WEEK
     Route: 048
     Dates: start: 2006
  6. VENTOLIN [Concomitant]
     Active Substance: ALBUTEROL SULFATE
     Indication: CYSTIC FIBROSIS LUNG
     Dosage: 4/6 PUFFS, BID
     Dates: start: 2009
  7. NOVORAPID [Concomitant]
     Active Substance: INSULIN ASPART
     Indication: CYSTIC FIBROSIS RELATED DIABETES
     Dosage: WITH FOOD, PRN
     Route: 058
     Dates: start: 200606
  8. PULMOZYME [Concomitant]
     Active Substance: DORNASE ALFA
     Indication: CYSTIC FIBROSIS LUNG
     Dosage: 2.5 ML, QD, NEB
     Route: 055
     Dates: start: 2008
  9. ACTRAPID [Concomitant]
     Active Substance: INSULIN HUMAN
     Indication: CYSTIC FIBROSIS RELATED DIABETES
     Dosage: 8 UNITS, NOCTE
     Route: 058
     Dates: start: 201909

REACTIONS (1)
  - Erythema nodosum [Recovered/Resolved]

NARRATIVE: CASE EVENT DATE: 20200812
